FAERS Safety Report 4498488-3 (Version None)
Quarter: 2004Q4

REPORT INFORMATION
  Report Type: 
  Country: None (occurrence: None)
  Receive Date: 20041105
  Receipt Date: 20041025
  Transmission Date: 20050328
  Serious: Yes (Hospitalization)
  Sender: FDA-Public Use
  Company Number: 209933

PATIENT
  Age: 67 Year
  Sex: Female
  Weight: 71 kg

DRUGS (5)
  1. RITUXAN [Suspect]
     Indication: LYMPHOMA
     Dosage: 700 MG, INTRAVENOUS
     Route: 042
     Dates: start: 20031205, end: 20040414
  2. ELAVIL [Concomitant]
  3. INEXIUM (ESOMEPRAZOLE MAGNESIUM) [Concomitant]
  4. VASTAREL (TRIMETAZIDINE) [Concomitant]
  5. DOLIPRANE (ACETAMINOPHEN) [Concomitant]

REACTIONS (11)
  - ASPIRATION BONE MARROW ABNORMAL [None]
  - BONE MARROW TOXICITY [None]
  - CHEST PAIN [None]
  - CHILLS [None]
  - CYTOMEGALOVIRUS ANTIBODY POSITIVE [None]
  - DIARRHOEA [None]
  - EPSTEIN-BARR VIRUS ANTIBODY POSITIVE [None]
  - FULL BLOOD COUNT ABNORMAL [None]
  - HYPERTHERMIA [None]
  - NEUTROPENIA [None]
  - WHITE BLOOD CELL COUNT DECREASED [None]
